FAERS Safety Report 8852639 (Version 1)
Quarter: 2012Q4

REPORT INFORMATION
  Report Type: 
  Country: PH (occurrence: PH)
  Receive Date: 20121022
  Receipt Date: 20121022
  Transmission Date: 20130627
  Serious: Yes (Death, Hospitalization)
  Sender: FDA-Public Use
  Company Number: PH-BAXTER-2012BAX020113

PATIENT
  Sex: Female

DRUGS (2)
  1. DIANEAL PD2 WITH 1.5% DEXTROSE [Suspect]
     Indication: AUTOMATED PERITONEAL DIALYSIS
     Route: 033
     Dates: start: 20121005, end: 20121011
  2. DIANEAL PD2 WITH 4.25% DEXTROSE [Suspect]
     Indication: AUTOMATED PERITONEAL DIALYSIS
     Route: 033
     Dates: start: 20121005, end: 20121011

REACTIONS (2)
  - Multi-organ failure [Fatal]
  - Dengue fever [Unknown]
